FAERS Safety Report 10218188 (Version 1)
Quarter: 2014Q2

REPORT INFORMATION
  Report Type: Spontaneous
  Country: US (occurrence: US)
  Receive Date: 20140605
  Receipt Date: 20140605
  Transmission Date: 20141212
  Serious: No
  Sender: FDA-Public Use
  Company Number: US-BIOGENIDEC-2014BI048400

PATIENT
  Age: 69 Year
  Sex: Female
  Weight: 48 kg

DRUGS (5)
  1. TECFIDERA [Suspect]
     Indication: MULTIPLE SCLEROSIS
     Route: 048
     Dates: start: 2013
  2. AMPYRA [Concomitant]
     Indication: GAIT DISTURBANCE
     Route: 048
     Dates: start: 201209
  3. AMPYRA [Concomitant]
     Indication: GAIT DISTURBANCE
     Route: 048
  4. LEVOTHYROXINE [Concomitant]
  5. VITAMIN D [Concomitant]
     Dates: start: 2013

REACTIONS (1)
  - Gait disturbance [Not Recovered/Not Resolved]
